FAERS Safety Report 10251970 (Version 2)
Quarter: 2015Q1

REPORT INFORMATION
  Report Type: Report from Study
  Country: JP (occurrence: None)
  Receive Date: 20140619
  Receipt Date: 20150309
  Transmission Date: 20150720
  Serious: Yes (Life-Threatening, Hospitalization, Disabling)
  Sender: FDA-Public Use
  Company Number: 2010JP002177

PATIENT
  Age: 52 Year
  Sex: Female
  Weight: 50 kg

DRUGS (22)
  1. PREDNISOLONE SODIUM SUCCINATE [Concomitant]
     Active Substance: PREDNISOLONE SODIUM SUCCINATE
  2. BAYASPIRIN (ACETYLSALICYLIC ACID) [Concomitant]
  3. ATELEC (CILNIDIPINE) [Concomitant]
  4. GASTER (FAMOTIDINE) ORODISPERSIBLE TABLET [Concomitant]
  5. WARFARIN [Concomitant]
     Active Substance: WARFARIN
  6. PROGRAF [Suspect]
     Active Substance: TACROLIMUS\TACROLIMUS ANHYDROUS
     Indication: LUPUS NEPHRITIS
     Route: 048
     Dates: start: 20090218, end: 20120516
  7. PREDNISOLONE. [Concomitant]
     Active Substance: PREDNISOLONE
  8. NORVASC [Concomitant]
     Active Substance: AMLODIPINE BESYLATE
  9. MEDROL (METHYLPREDNISOLONE) TABLET [Concomitant]
  10. JUSO (SODIUM BICARBONATE) [Concomitant]
  11. PROTECADIN (LAFUTIDINE) [Concomitant]
  12. VASOLAN /00014302/ (VERAPAMIL HYDROCHLORIDE) [Concomitant]
  13. ALFAROL [Concomitant]
     Active Substance: ALFACALCIDOL
  14. BLOPRESS (CANDESARTAN CILEXETIL) [Concomitant]
     Active Substance: CANDESARTAN CILEXETIL
  15. FUROSEMIDE. [Concomitant]
     Active Substance: FUROSEMIDE
  16. METHYLPREDNISOLONE SODIUM SUCCINATE (METHYLPREDNISOLONE SODIUM SUCCINATE) [Concomitant]
  17. SELBEX (TEPRENONE) [Concomitant]
     Active Substance: TEPRENONE
  18. FLUITRAN (TRICHLORMETHIAZIDE) [Concomitant]
  19. ARGAMATE (CALCIUM POLYSTYRENE SULFONATE) [Concomitant]
  20. BREDININ (MIZORIBINE) [Concomitant]
     Active Substance: MIZORIBINE
  21. ZYLORIC (ALLOPURINOL) [Concomitant]
     Active Substance: ALLOPURINOL
  22. ASPENON (APRINDINE HYDROCHLORIDE) [Concomitant]

REACTIONS (17)
  - Platelet count decreased [None]
  - Renal disorder [None]
  - Cardiac valve disease [None]
  - Hypertension [None]
  - Aortic valve incompetence [None]
  - Adrenal insufficiency [None]
  - Atrial fibrillation [None]
  - Mitral valve incompetence [None]
  - Condition aggravated [None]
  - Lupus nephritis [None]
  - Neuropsychiatric lupus [None]
  - Hypophagia [None]
  - Diarrhoea [None]
  - Seizure [None]
  - Systemic lupus erythematosus [None]
  - Disease recurrence [None]
  - Hyperkalaemia [None]

NARRATIVE: CASE EVENT DATE: 20091221
